FAERS Safety Report 8347432-7 (Version None)
Quarter: 2012Q2

REPORT INFORMATION
  Report Type: 
  Country: None (occurrence: None)
  Receive Date: 20120509
  Receipt Date: 20120323
  Transmission Date: 20120825
  Serious: Yes (Hospitalization, Other)
  Sender: FDA-Public Use
  Company Number: GB-ROCHE-673256

PATIENT
  Sex: Female
  Weight: 62 kg

DRUGS (11)
  1. BETAHISTINE [Concomitant]
     Dosage: PRIOR TO 2006
  2. FYBOGEL [Concomitant]
     Dosage: FORM: SACHET; DOSE: 1 SATCHET DAILY
  3. MABTHERA [Suspect]
     Indication: CHRONIC LYMPHOCYTIC LEUKAEMIA
     Dosage: FORM: VIAL; BATCH NO.: B6042 FOR 500 MG VIAL; BATCH NO.: B6007 FOR 100 MG VIAL
     Route: 042
     Dates: start: 20091105, end: 20091207
  4. PROCLORPERAZINA [Concomitant]
  5. MABTHERA [Suspect]
     Route: 042
  6. CHLORAMBUCIL [Suspect]
     Indication: CHRONIC LYMPHOCYTIC LEUKAEMIA
     Dosage: PER PROTOCOL: 10 MG/M2/DAY P.O. DAYS 1-7, PERMANENTLY DISCONTINUED.
     Route: 048
     Dates: start: 20091105, end: 20091207
  7. MABTHERA [Suspect]
     Dosage: PERMANENTLY DISCONTINUED.
     Route: 042
     Dates: start: 20091204, end: 20091207
  8. ASPIRIN [Concomitant]
  9. OMEPRAZOLE [Concomitant]
  10. CALCIUM CARBONATE [Concomitant]
  11. MORPHINE [Concomitant]

REACTIONS (4)
  - SYNCOPE [None]
  - VOMITING [None]
  - LOSS OF CONSCIOUSNESS [None]
  - DIZZINESS [None]
